FAERS Safety Report 21629040 (Version 1)
Quarter: 2022Q4

REPORT INFORMATION
  Report Type: Spontaneous
  Country: US (occurrence: None)
  Receive Date: 20221121
  Receipt Date: 20221121
  Transmission Date: 20230113
  Serious: Yes (Other)
  Sender: FDA-Public Use
  Company Number: None

PATIENT
  Age: 37 Year
  Sex: Male
  Weight: 123.83 kg

DRUGS (1)
  1. SUBOXONE [Suspect]
     Active Substance: BUPRENORPHINE HYDROCHLORIDE\NALOXONE HYDROCHLORIDE
     Indication: Drug dependence
     Dates: start: 20220916

REACTIONS (4)
  - Gastrointestinal disorder [None]
  - Oropharyngeal discomfort [None]
  - Dysphagia [None]
  - Product substitution issue [None]

NARRATIVE: CASE EVENT DATE: 20220916
